FAERS Safety Report 7538957-2 (Version None)
Quarter: 2011Q2

REPORT INFORMATION
  Report Type: 
  Country: None (occurrence: None)
  Receive Date: 20110610
  Receipt Date: 20110131
  Transmission Date: 20111010
  Serious: Yes (Other)
  Sender: FDA-Public Use
  Company Number: US-BAYER-201039355NA

PATIENT
  Age: 18 Year
  Sex: Female
  Weight: 58.05 kg

DRUGS (10)
  1. YAZ [Suspect]
     Indication: CONTRACEPTION
     Dosage: 1 TAB / DAY
     Route: 048
     Dates: start: 20060511, end: 20080504
  2. YAZ [Suspect]
     Indication: DYSMENORRHOEA
  3. PREDNISONE [Concomitant]
     Dosage: 20 MG, UNK
     Route: 048
  4. METOCLOPRAMIDE [Concomitant]
     Dosage: 500 MG, UNK
     Route: 048
  5. METRONIDAZOLE [Concomitant]
     Dosage: 500 MG, UNK
     Route: 048
  6. ZANTAC [Concomitant]
     Indication: GASTROOESOPHAGEAL REFLUX DISEASE
     Dosage: 150 MG, QD
     Route: 048
  7. DICYCLOMINE [Concomitant]
     Dosage: 20 MG, UNK
     Route: 048
  8. PROMETHAZINE [Concomitant]
     Dosage: 25 MG, UNK
     Route: 048
  9. METOCLOPRAMIDE [Concomitant]
     Dosage: 10 MG, UNK
     Route: 048
  10. PATANOL [Concomitant]
     Dosage: 0.1 %, UNK

REACTIONS (7)
  - FATIGUE [None]
  - ABDOMINAL PAIN [None]
  - NAUSEA [None]
  - VOMITING [None]
  - CHOLECYSTECTOMY [None]
  - CHOLELITHIASIS [None]
  - CHOLECYSTITIS CHRONIC [None]
